FAERS Safety Report 20107261 (Version 2)
Quarter: 2021Q4

REPORT INFORMATION
  Report Type: Other
  Country: US (occurrence: None)
  Receive Date: 20211124
  Receipt Date: 20211129
  Transmission Date: 20220303
  Serious: Yes (Death)
  Sender: FDA-Public Use
  Company Number: US-ROCHE-2958267

PATIENT
  Age: 10 Year
  Sex: Male

DRUGS (2)
  1. EVRYSDI [Suspect]
     Active Substance: RISDIPLAM
     Indication: Spinal muscular atrophy
     Dosage: USE AS DIRECTED
     Route: 065
  2. EVRYSDI [Suspect]
     Active Substance: RISDIPLAM
     Dosage: TAKE 6.6 ML (5 MG) VIA G-TUBE ONCE DAILY.
     Route: 065

REACTIONS (1)
  - Death [Fatal]

NARRATIVE: CASE EVENT DATE: 20211111
